FAERS Safety Report 16251731 (Version 1)
Quarter: 2019Q2

REPORT INFORMATION
  Report Type: Spontaneous
  Country: US (occurrence: US)
  Receive Date: 20190428
  Receipt Date: 20190428
  Transmission Date: 20190711
  Serious: Yes (Hospitalization)
  Sender: FDA-Public Use
  Company Number: None

PATIENT
  Age: 7 Year
  Sex: Male
  Weight: 23.85 kg

DRUGS (3)
  1. MOTRIN [Concomitant]
     Active Substance: IBUPROFEN
  2. CHILDRENS CETIRIZINE (GENERIC) [Concomitant]
  3. AMOXICILLIN 400 MG/5ML SUSPENSION NDC 0143-9887-75 [Suspect]
     Active Substance: AMOXICILLIN
     Indication: PHARYNGITIS STREPTOCOCCAL
     Dosage: ?          QUANTITY:1 TEASPOON(S);?
     Route: 048
     Dates: start: 20190426, end: 20190427

REACTIONS (4)
  - Condition aggravated [None]
  - Pyrexia [None]
  - Lymphadenopathy [None]
  - Rash generalised [None]

NARRATIVE: CASE EVENT DATE: 20190427
